FAERS Safety Report 14080205 (Version 1)
Quarter: 2017Q4

REPORT INFORMATION
  Report Type: Spontaneous
  Country: US (occurrence: US)
  Receive Date: 20171012
  Receipt Date: 20171012
  Transmission Date: 20180321
  Serious: No
  Sender: FDA-Public Use
  Company Number: US-MYLANLABS-2017M1031685

PATIENT
  Sex: Male
  Weight: 157.37 kg

DRUGS (1)
  1. AMLODIPINE AND BENAZEPRIL HYDROCHLORIDE CAPSULES, USP [Suspect]
     Active Substance: AMLODIPINE BESYLATE\BENAZEPRIL HYDROCHLORIDE
     Indication: PRODUCT USED FOR UNKNOWN INDICATION
     Dosage: 10-40 MG, UNK
     Route: 048

REACTIONS (3)
  - Headache [Recovered/Resolved]
  - Fall [Recovered/Resolved]
  - Dizziness [Recovered/Resolved]
